FAERS Safety Report 17859727 (Version 2)
Quarter: 2020Q2

REPORT INFORMATION
  Report Type: Spontaneous
  Country: US (occurrence: US)
  Receive Date: 20200604
  Receipt Date: 20200609
  Transmission Date: 20200714
  Serious: No
  Sender: FDA-Public Use
  Company Number: US-PFIZER INC-2020217761

PATIENT
  Age: 79 Year
  Sex: Female
  Weight: 52.16 kg

DRUGS (2)
  1. METHOTREXATE SODIUM. [Suspect]
     Active Substance: METHOTREXATE SODIUM
     Dosage: 25 MG, TAKING IT OFF AND ON
  2. METHOTREXATE SODIUM. [Suspect]
     Active Substance: METHOTREXATE SODIUM
     Indication: ARTHRITIS
     Dosage: 25 MG, WEEKLY (1 DOSE PER WEEK)

REACTIONS (2)
  - Malaise [Unknown]
  - Intentional product misuse [Unknown]
